FAERS Safety Report 7506184-0 (Version None)
Quarter: 2011Q2

REPORT INFORMATION
  Report Type: 
  Country: None (occurrence: None)
  Receive Date: 20110526
  Receipt Date: 20110518
  Transmission Date: 20111010
  Serious: Yes (Death, Hospitalization)
  Sender: FDA-Public Use
  Company Number: GB-SANOFI-AVENTIS-2011SA012596

PATIENT
  Age: 80 Year
  Sex: Male
  Weight: 86.4 kg

DRUGS (12)
  1. DOCETAXEL [Suspect]
     Route: 041
     Dates: start: 20110125, end: 20110125
  2. BLINDED THERAPY [Suspect]
     Indication: PROSTATE CANCER
     Route: 048
     Dates: start: 20101001
  3. ENOXAPARIN [Concomitant]
     Indication: THROMBOSIS PROPHYLAXIS
     Route: 065
  4. DOCETAXEL [Suspect]
     Indication: PROSTATE CANCER
     Route: 041
     Dates: start: 20101001, end: 20101001
  5. INDORAMIN [Concomitant]
     Indication: HYPERTENSION
     Route: 048
     Dates: end: 20110205
  6. PREDNISONE [Suspect]
     Indication: PROSTATE CANCER
     Dates: start: 20101001
  7. MORPHINE SULFATE [Concomitant]
     Route: 048
     Dates: end: 20110205
  8. METOCLOPRAMIDE [Concomitant]
     Indication: ANTIEMETIC SUPPORTIVE CARE
     Route: 048
     Dates: end: 20110204
  9. FERROUS FUMARATE [Concomitant]
     Route: 048
     Dates: end: 20110205
  10. BLINDED THERAPY [Suspect]
     Route: 048
     Dates: start: 20110125
  11. PREDNISONE [Suspect]
     Dates: start: 20110125
  12. OMEPRAZOLE [Concomitant]
     Route: 048
     Dates: end: 20110205

REACTIONS (4)
  - PROSTATE CANCER METASTATIC [None]
  - LOWER RESPIRATORY TRACT INFECTION [None]
  - DYSPNOEA [None]
  - PULMONARY EMBOLISM [None]
